FAERS Safety Report 4339431-7 (Version None)
Quarter: 2004Q2

REPORT INFORMATION
  Report Type: 
  Country: None (occurrence: None)
  Receive Date: 20040415
  Receipt Date: 20040319
  Transmission Date: 20050107
  Serious: Yes (Death)
  Sender: FDA-Public Use
  Company Number: US-GLAXOSMITHKLINE-A0504024A

PATIENT
  Age: 59 Year
  Sex: Male

DRUGS (18)
  1. PAXIL [Suspect]
     Indication: DEPRESSION
     Route: 048
  2. TEMAZEPAM [Concomitant]
     Route: 048
  3. DILANTIN [Concomitant]
     Indication: CONVULSION
     Route: 048
  4. PHENOBARBITAL TAB [Concomitant]
     Indication: CONVULSION
     Dosage: 60MG TWICE PER DAY
  5. IMDUR [Concomitant]
     Dosage: 30MG TWICE PER DAY
     Route: 048
  6. CATAPRES [Concomitant]
     Indication: HYPERTENSION
     Dosage: .2MG TWICE PER DAY
     Route: 062
  7. PROZAC [Concomitant]
     Indication: DEPRESSION
     Dosage: 90MG ALTERNATE DAYS
     Route: 048
  8. RITALIN [Concomitant]
     Route: 048
     Dates: start: 20030501
  9. ZYPREXA [Concomitant]
     Indication: DEPRESSION
     Dosage: 10MG THREE TIMES PER DAY
     Route: 048
  10. BENADRYL [Concomitant]
     Dosage: 50MG AT NIGHT
  11. STRATTERA [Concomitant]
     Dosage: 40MG PER DAY
  12. NITROGLYCERIN [Concomitant]
  13. XANAX [Concomitant]
  14. DIOVAN HCT [Concomitant]
     Indication: HYPERTENSION
  15. ALTACE [Concomitant]
     Indication: HYPERTENSION
     Dosage: 10MG TWICE PER DAY
  16. TIAZAC [Concomitant]
     Indication: HYPERTENSION
     Dosage: 80MG AT NIGHT
  17. HYTRIN [Concomitant]
     Indication: BLADDER DISORDER
     Dosage: 5MG PER DAY
  18. TOPROL-XL [Concomitant]
     Dosage: 100MG IN THE MORNING

REACTIONS (3)
  - GUN SHOT WOUND [None]
  - MAJOR DEPRESSION [None]
  - SUICIDAL IDEATION [None]
